FAERS Safety Report 8413804-5 (Version None)
Quarter: 2012Q2

REPORT INFORMATION
  Report Type: 
  Country: None (occurrence: None)
  Receive Date: 20120605
  Receipt Date: 20120525
  Transmission Date: 20120825
  Serious: Yes (Hospitalization, Other)
  Sender: FDA-Public Use
  Company Number: JP-MERCK-1205USA05293

PATIENT
  Age: 82 Year
  Sex: Female

DRUGS (7)
  1. FOSAMAX [Suspect]
     Route: 048
     Dates: end: 20120521
  2. FOSAMAX [Suspect]
     Indication: OSTEOPOROSIS
     Route: 048
     Dates: start: 20040101
  3. MUCOSOLVAN [Concomitant]
     Indication: ASTHMA
     Route: 048
  4. PEPCID [Concomitant]
     Indication: GASTRITIS
     Route: 048
  5. CLARITHROMYCIN [Concomitant]
     Indication: ASTHMA
     Route: 048
  6. ADVAIR DISKUS 100/50 [Concomitant]
     Indication: ASTHMA
     Route: 055
  7. PREDNISOLONE [Concomitant]
     Indication: ASTHMA
     Route: 048

REACTIONS (5)
  - HERPES ZOSTER [None]
  - FACIAL PAIN [None]
  - OSTEONECROSIS OF JAW [None]
  - BONE PAIN [None]
  - DIZZINESS [None]
